FAERS Safety Report 13797031 (Version 2)
Quarter: 2020Q3

REPORT INFORMATION
  Report Type: Report from Study
  Country: JP (occurrence: JP)
  Receive Date: 20170727
  Receipt Date: 20170801
  Transmission Date: 20201105
  Serious: Yes (Life-Threatening, Hospitalization)
  Sender: FDA-Public Use
  Company Number: JP-ROCHE-1483843

PATIENT
  Age: 39 Year
  Sex: Female
  Weight: 49 kg

DRUGS (8)
  1. ALECTINIB. [Suspect]
     Active Substance: ALECTINIB
     Dosage: 160 MG TWICE A DAY ON DAYS 12?14
     Route: 048
  2. ALECTINIB. [Suspect]
     Active Substance: ALECTINIB
     Route: 048
  3. ALECTINIB. [Suspect]
     Active Substance: ALECTINIB
     Dosage: 20 MG TWICE A DAY ON DAYS 3 AND 4
     Route: 048
  4. ALECTINIB. [Suspect]
     Active Substance: ALECTINIB
     Indication: LUNG ADENOCARCINOMA
     Route: 048
     Dates: start: 20141014, end: 20141025
  5. ALECTINIB. [Suspect]
     Active Substance: ALECTINIB
     Dosage: ON DAYS1 AND 2.
     Route: 048
     Dates: start: 201503
  6. ALECTINIB. [Suspect]
     Active Substance: ALECTINIB
     Dosage: 120 MG TWICE A DAY ON DAYS 10 AND 11
     Route: 048
  7. ALECTINIB. [Suspect]
     Active Substance: ALECTINIB
     Dosage: 80 MG TWICE A DAY ON DAYS 8 AND 9.
     Route: 048
  8. ALECTINIB. [Suspect]
     Active Substance: ALECTINIB
     Dosage: 40 MG TWICE A DAY ON DAYS 5?7
     Route: 048

REACTIONS (3)
  - Aspartate aminotransferase increased [Unknown]
  - Drug eruption [Recovered/Resolved]
  - Alanine aminotransferase increased [Unknown]

NARRATIVE: CASE EVENT DATE: 20141025
